FAERS Safety Report 7575548-1 (Version None)
Quarter: 2011Q2

REPORT INFORMATION
  Report Type: 
  Country: None (occurrence: None)
  Receive Date: 20110627
  Receipt Date: 20110615
  Transmission Date: 20111010
  Serious: Yes (Other)
  Sender: FDA-Public Use
  Company Number: DK-MERCK-1106DNK00003

PATIENT
  Age: 66 Year
  Sex: Female

DRUGS (6)
  1. KETOCONAZOLE [Suspect]
     Route: 048
  2. FLUTICASONE PROPIONATE AND SALMETEROL XINAFOATE [Concomitant]
     Indication: ASTHMA
     Route: 055
  3. FLUCONAZOLE [Suspect]
     Route: 048
  4. ITRACONAZOLE [Suspect]
     Route: 048
  5. LEVOTHYROXINE SODIUM [Suspect]
     Indication: HYPERTHYROIDISM
     Route: 048
  6. ZOCOR [Suspect]
     Route: 048

REACTIONS (3)
  - EAR DISCOMFORT [None]
  - HYPOACUSIS [None]
  - ALOPECIA [None]
